FAERS Safety Report 14803318 (Version 1)
Quarter: 2018Q2

REPORT INFORMATION
  Report Type: Spontaneous
  Country: US (occurrence: US)
  Receive Date: 20180425
  Receipt Date: 20180425
  Transmission Date: 20180711
  Serious: Yes (Other)
  Sender: FDA-Public Use
  Company Number: US-AMGEN-USASP2018052720

PATIENT
  Age: 80 Year
  Sex: Female

DRUGS (3)
  1. PARSABIV [Suspect]
     Active Substance: ETELCALCETIDE HYDROCHLORIDE
     Dosage: 5 MG, UNK
     Route: 065
  2. SENSIPAR [Suspect]
     Active Substance: CINACALCET HYDROCHLORIDE
     Indication: HYPERPARATHYROIDISM SECONDARY
     Dosage: UNK
     Route: 065
  3. PARSABIV [Suspect]
     Active Substance: ETELCALCETIDE HYDROCHLORIDE
     Indication: HYPERPARATHYROIDISM SECONDARY
     Dosage: 2.5 MG, UNK
     Route: 065

REACTIONS (10)
  - Muscle twitching [Unknown]
  - Underdose [Unknown]
  - Oedema mouth [Unknown]
  - Pruritus [Unknown]
  - Abdominal discomfort [Unknown]
  - Drug intolerance [Unknown]
  - Drug effect incomplete [Unknown]
  - Swollen tongue [Unknown]
  - Dyspnoea [Unknown]
  - Treatment noncompliance [Unknown]
